FAERS Safety Report 7278306-0 (Version None)
Quarter: 2010Q4

REPORT INFORMATION
  Report Type: 
  Country: None (occurrence: None)
  Receive Date: 20101206
  Receipt Date: 20101008
  Transmission Date: 20110411
  Serious: Yes (Other)
  Sender: FDA-Public Use
  Company Number: 2010SP054178

PATIENT
  Age: 48 Year
  Sex: Female

DRUGS (8)
  1. SAPHRIS [Suspect]
     Indication: BIPOLAR DISORDER
     Dosage: 5 MG;QD;SL, 5 MG;BID;SL
     Route: 060
     Dates: end: 20100930
  2. SAPHRIS [Suspect]
     Indication: BIPOLAR I DISORDER
     Dosage: 5 MG;QD;SL, 5 MG;BID;SL
     Route: 060
     Dates: end: 20100930
  3. SAPHRIS [Suspect]
     Indication: BIPOLAR DISORDER
     Dosage: 5 MG;QD;SL, 5 MG;BID;SL
     Route: 060
     Dates: start: 20100902
  4. SAPHRIS [Suspect]
     Indication: BIPOLAR I DISORDER
     Dosage: 5 MG;QD;SL, 5 MG;BID;SL
     Route: 060
     Dates: start: 20100902
  5. SEROQUEL [Concomitant]
  6. ABILIFY [Concomitant]
  7. LEXAPRO [Concomitant]
  8. TRILEPTAL [Concomitant]

REACTIONS (7)
  - BIPOLAR DISORDER [None]
  - DEPRESSION [None]
  - DRUG INEFFECTIVE [None]
  - INAPPROPRIATE SCHEDULE OF DRUG ADMINISTRATION [None]
  - MOOD SWINGS [None]
  - SLEEP DISORDER [None]
  - UNDERDOSE [None]
